FAERS Safety Report 7042726-X (Version None)
Quarter: 2010Q4

REPORT INFORMATION
  Report Type: 
  Country: None (occurrence: None)
  Receive Date: 20101013
  Receipt Date: 20090901
  Transmission Date: 20110411
  Serious: No
  Sender: FDA-Public Use
  Company Number: US-ASTRAZENECA-2009UW18719

PATIENT
  Sex: Male
  Weight: 90 kg

DRUGS (4)
  1. SYMBICORT [Suspect]
     Indication: CHRONIC OBSTRUCTIVE PULMONARY DISEASE
     Dosage: 80/4.5 UG
     Route: 055
  2. SYMBICORT [Suspect]
     Dosage: 160/4.5 UG
     Route: 055
  3. SYMBICORT [Suspect]
     Dosage: 160/4.5 UG 2 PUFFS
     Route: 055
  4. FLAGYL [Concomitant]

REACTIONS (1)
  - DYSPNOEA [None]
